FAERS Safety Report 24533730 (Version 1)
Quarter: 2024Q4

REPORT INFORMATION
  Report Type: Spontaneous
  Country: US (occurrence: US)
  Receive Date: 20241022
  Receipt Date: 20241022
  Transmission Date: 20250114
  Serious: No
  Sender: LEO PHARM
  Company Number: US-LEO Pharma-374373

PATIENT
  Age: 27 Year
  Sex: Male

DRUGS (1)
  1. ADBRY [Suspect]
     Active Substance: TRALOKINUMAB-LDRM
     Indication: Dermatitis atopic
     Dosage: 600 MG INITIAL DOSE; TREATMENT REPORTED AS ONGOING
     Route: 058
     Dates: start: 202410

REACTIONS (2)
  - Pruritus [Unknown]
  - Feeling hot [Unknown]
